FAERS Safety Report 15333745 (Version 1)
Quarter: 2018Q3

REPORT INFORMATION
  Report Type: Spontaneous
  Country: US (occurrence: US)
  Receive Date: 20180830
  Receipt Date: 20180830
  Transmission Date: 20181010
  Serious: No
  Sender: FDA-Public Use
  Company Number: US-SA-2018SA241436

PATIENT
  Age: 37 Year
  Sex: Female

DRUGS (1)
  1. LEMTRADA [Suspect]
     Active Substance: ALEMTUZUMAB
     Dosage: UNK, UNK
     Route: 041
     Dates: start: 201611, end: 201611

REACTIONS (7)
  - Fatigue [Recovered/Resolved]
  - Arthralgia [Recovered/Resolved]
  - Flushing [Recovered/Resolved]
  - Night sweats [Recovered/Resolved]
  - Headache [Recovered/Resolved]
  - Rash [Recovered/Resolved]
  - Decreased appetite [Recovered/Resolved]

NARRATIVE: CASE EVENT DATE: 2016
